FAERS Safety Report 7450167-6 (Version None)
Quarter: 2011Q2

REPORT INFORMATION
  Report Type: 
  Country: None (occurrence: None)
  Receive Date: 20110502
  Receipt Date: 20110426
  Transmission Date: 20111010
  Serious: No
  Sender: FDA-Public Use
  Company Number: US-PFIZER INC-2011090131

PATIENT
  Sex: Female

DRUGS (1)
  1. PREMARIN [Suspect]
     Dosage: UNK
     Route: 067

REACTIONS (4)
  - HYPERSENSITIVITY [None]
  - DIZZINESS [None]
  - MALAISE [None]
  - DRUG ADMINISTERED AT INAPPROPRIATE SITE [None]
